FAERS Safety Report 13466395 (Version 1)
Quarter: 2017Q2

REPORT INFORMATION
  Report Type: Spontaneous
  Country: US (occurrence: US)
  Receive Date: 20170420
  Receipt Date: 20170420
  Transmission Date: 20170830
  Serious: No
  Sender: FDA-Public Use
  Company Number: None

PATIENT
  Sex: Male

DRUGS (1)
  1. SUTENT [Suspect]
     Active Substance: SUNITINIB MALATE
     Dosage: DAILY FOR 4 WEEKS THEN 2 WEEKS OFF
     Route: 048
     Dates: start: 20161127

REACTIONS (3)
  - Cardiac disorder [None]
  - Renal impairment [None]
  - Pulmonary oedema [None]
